FAERS Safety Report 4430168-2 (Version None)
Quarter: 2004Q3

REPORT INFORMATION
  Report Type: 
  Country: None (occurrence: None)
  Receive Date: 20040820
  Receipt Date: 20040802
  Transmission Date: 20050211
  Serious: Yes (Hospitalization, Other)
  Sender: FDA-Public Use
  Company Number: PHBS2004CA10402

PATIENT
  Age: 40 Year
  Sex: Male
  Weight: 66 kg

DRUGS (5)
  1. CLOZARIL [Suspect]
     Indication: SCHIZOPHRENIA
     Dosage: 450 MG/D
     Route: 048
     Dates: end: 20040805
  2. CLOZARIL [Suspect]
     Dosage: UNKNOWN
     Dates: start: 20010401
  3. CELEXA [Concomitant]
     Dosage: 10 MG/D
     Dates: start: 20031001
  4. VALPROIC ACID [Concomitant]
     Dosage: 1375 MG/D
     Dates: start: 20020801
  5. SEROQUEL [Concomitant]
     Dosage: 450 MG/D
     Dates: start: 20020801

REACTIONS (8)
  - ABDOMINAL PAIN [None]
  - ANTIPSYCHOTIC DRUG LEVEL ABOVE THERAPEUTIC [None]
  - COLITIS ISCHAEMIC [None]
  - CONSTIPATION [None]
  - DISEASE PROGRESSION [None]
  - ENTEROCOLITIS INFECTIOUS [None]
  - HAEMORRHAGE [None]
  - RECTAL HAEMORRHAGE [None]
